FAERS Safety Report 7345274-2 (Version None)
Quarter: 2011Q1

REPORT INFORMATION
  Report Type: 
  Country: None (occurrence: None)
  Receive Date: 20110310
  Receipt Date: 20110228
  Transmission Date: 20110831
  Serious: Yes (Other)
  Sender: FDA-Public Use
  Company Number: US-ELI_LILLY_AND_COMPANY-US201103000294

PATIENT
  Sex: Female

DRUGS (11)
  1. CLONIDINE [Concomitant]
  2. NIASPAN [Concomitant]
  3. FISH OIL [Concomitant]
  4. HYDROCODONE BITARTRATE [Concomitant]
     Dosage: UNK, AS NEEDED
  5. METOPROLOL [Concomitant]
  6. ALEVE [Concomitant]
  7. CRESTOR [Concomitant]
  8. RAMIPRIL [Concomitant]
  9. EVISTA [Suspect]
     Indication: OSTEOPOROSIS
     Dosage: 60 MG, DAILY (1/D)
  10. NEFAZODONE HCL [Concomitant]
  11. THYROID THERAPY [Concomitant]

REACTIONS (1)
  - BREAST CANCER [None]
